FAERS Safety Report 6746725-4 (Version None)
Quarter: 2010Q2

REPORT INFORMATION
  Report Type: 
  Country: None (occurrence: None)
  Receive Date: 20100528
  Receipt Date: 20090812
  Transmission Date: 20101027
  Serious: No
  Sender: FDA-Public Use
  Company Number: A0785884A

PATIENT
  Age: 51 Year
  Sex: Male

DRUGS (21)
  1. VENTOLIN [Suspect]
     Indication: ASTHMA
     Dosage: 2PUFF UNKNOWN
     Route: 055
     Dates: start: 20090516, end: 20090521
  2. PREZISTA [Concomitant]
  3. ACTOS [Concomitant]
  4. VIREAD [Concomitant]
  5. INTELENCE [Concomitant]
  6. ISENTRESS [Concomitant]
  7. ABACAVIR SULFATE [Concomitant]
  8. NORVIR [Concomitant]
  9. FAMCICLOVIR [Concomitant]
  10. ASPIRIN [Concomitant]
  11. CALCIUM MAGNESIUM SUPPLEMENT [Concomitant]
  12. FISH OIL [Concomitant]
  13. VITAMIN D3 [Concomitant]
  14. VITAMIN B-12 [Concomitant]
  15. VITAMIN E [Concomitant]
  16. COENZYME Q10 [Concomitant]
  17. SELENIUM [Concomitant]
  18. VITAMIN B6 [Concomitant]
  19. VITAMIN B5 [Concomitant]
  20. BORON [Concomitant]
  21. PROTEOLYTIC ENZYMES [Concomitant]

REACTIONS (2)
  - DRUG INEFFECTIVE [None]
  - PRODUCT QUALITY ISSUE [None]
